FAERS Safety Report 7285319-1 (Version None)
Quarter: 2011Q1

REPORT INFORMATION
  Report Type: 
  Country: None (occurrence: None)
  Receive Date: 20110210
  Receipt Date: 20110202
  Transmission Date: 20110831
  Serious: Yes (Hospitalization)
  Sender: FDA-Public Use
  Company Number: BR-ROCHE-754193

PATIENT
  Sex: Female
  Weight: 72.5 kg

DRUGS (8)
  1. PERTUZUMAB [Suspect]
     Dosage: LOADING DOSE TAKEN AS PER THE PROTOCOL
     Route: 042
     Dates: start: 20101216
  2. PERTUZUMAB [Suspect]
     Dosage: LAST DOSE PRIOR TO SAE:06 JAN 2011, FREQUENCY:21/21, DOSAGE FORM: INFUSION, MAINTENANCE  DOSE
     Route: 042
  3. NEUPOGEN [Concomitant]
     Dates: start: 20110113, end: 20110114
  4. OMEPRAZOLE [Concomitant]
     Dates: start: 20101216
  5. TRASTUZUMAB [Suspect]
     Dosage: LOADING DOSE TAKEN AS PER THE PROTOCOL
     Route: 042
     Dates: start: 20101216
  6. DOCETAXEL [Suspect]
     Dosage: LAST DOSE PRIOR TO SAE:06 JAN 2011, FREQUENCY:21/21, DOSAGE FORM: INFUSION, DOSE:75 MG/M2
     Route: 042
     Dates: start: 20101216
  7. TRASTUZUMAB [Suspect]
     Dosage: LAST DOSE PRIOR TO SAE:06 JAN 2011, FREQUENCY:21/21, DOSAGE FORM: INFUSION, MAINTENANCE  DOSE
     Route: 042
  8. CARBOPLATIN [Suspect]
     Dosage: LAST DOSE PRIOR TO SAE:06 JAN 2011, FREQUENCY:21/21, DOSAGE FORM: INFUSION, DOSE 6 AUC
     Route: 042
     Dates: start: 20101216

REACTIONS (2)
  - FEBRILE NEUTROPENIA [None]
  - SEPSIS [None]
